FAERS Safety Report 6365243-9 (Version None)
Quarter: 2009Q3

REPORT INFORMATION
  Report Type: 
  Country: None (occurrence: None)
  Receive Date: 20090919
  Receipt Date: 20090810
  Transmission Date: 20100115
  Serious: No
  Sender: FDA-Public Use
  Company Number: US-ABBOTT-09P-163-0590512-00

PATIENT
  Sex: Female
  Weight: 58.566 kg

DRUGS (1)
  1. HUMIRA [Suspect]
     Indication: JUVENILE ARTHRITIS
     Dates: start: 20070810

REACTIONS (3)
  - FUNGAL INFECTION [None]
  - IMPETIGO [None]
  - TINEA PEDIS [None]
